FAERS Safety Report 8310228-6 (Version None)
Quarter: 2012Q2

REPORT INFORMATION
  Report Type: 
  Country: None (occurrence: None)
  Receive Date: 20120425
  Receipt Date: 20120417
  Transmission Date: 20120825
  Serious: Yes (Hospitalization, Other)
  Sender: FDA-Public Use
  Company Number: US-BRISTOL-MYERS SQUIBB COMPANY-16355240

PATIENT
  Age: 52 Year
  Sex: Female

DRUGS (2)
  1. SEROQUEL [Suspect]
  2. ABILIFY [Suspect]
     Dates: start: 20080101

REACTIONS (8)
  - PANIC ATTACK [None]
  - NEUROLOGICAL EXAMINATION ABNORMAL [None]
  - PHOTOSENSITIVITY REACTION [None]
  - HALLUCINATION [None]
  - SUICIDE ATTEMPT [None]
  - LIVER INJURY [None]
  - VISUAL IMPAIRMENT [None]
  - HEADACHE [None]
